FAERS Safety Report 15981183 (Version 2)
Quarter: 2019Q1

REPORT INFORMATION
  Report Type: Spontaneous
  Country: US (occurrence: US)
  Receive Date: 20190219
  Receipt Date: 20190301
  Transmission Date: 20190418
  Serious: Yes (Other)
  Sender: FDA-Public Use
  Company Number: US-BRISTOL-MYERS SQUIBB COMPANY-BMS-2019-016641

PATIENT
  Age: 42 Year
  Sex: Male

DRUGS (2)
  1. ELIQUIS [Suspect]
     Active Substance: APIXABAN
     Indication: PRODUCT USED FOR UNKNOWN INDICATION
     Dosage: 5 MG, BID
     Route: 065
  2. ELIQUIS [Suspect]
     Active Substance: APIXABAN
     Indication: SPLENIC INFARCTION
     Dosage: 10 MG, BID
     Route: 065
     Dates: start: 20181222

REACTIONS (2)
  - Product use in unapproved indication [Unknown]
  - Haemorrhage [Unknown]
